FAERS Safety Report 9532209 (Version 1)
Quarter: 2013Q3

REPORT INFORMATION
  Report Type: Spontaneous
  Country: DE (occurrence: DE)
  Receive Date: 20130918
  Receipt Date: 20130918
  Transmission Date: 20140515
  Serious: Yes (Other)
  Sender: FDA-Public Use
  Company Number: DE-ELI_LILLY_AND_COMPANY-DE201309004501

PATIENT
  Sex: 0

DRUGS (2)
  1. HUMINSULIN NPH [Suspect]
  2. HUMINSULIN NPH [Suspect]

REACTIONS (4)
  - Foetal exposure during pregnancy [Recovered/Resolved]
  - Premature baby [Unknown]
  - Umbilical cord abnormality [Unknown]
  - Amniocentesis abnormal [Unknown]
